FAERS Safety Report 14020211 (Version 2)
Quarter: 2018Q1

REPORT INFORMATION
  Report Type: Report from Study
  Country: US (occurrence: US)
  Receive Date: 20170928
  Receipt Date: 20180219
  Transmission Date: 20180508
  Serious: Yes (Other)
  Sender: FDA-Public Use
  Company Number: PHEH2017US031344

PATIENT
  Sex: Female

DRUGS (1)
  1. ILARIS [Suspect]
     Active Substance: CANAKINUMAB
     Indication: CRYOPYRIN ASSOCIATED PERIODIC SYNDROME
     Dosage: 180 MG, EVERY 6 WEEKS
     Route: 058

REACTIONS (4)
  - Cryopyrin associated periodic syndrome [Unknown]
  - Inappropriate schedule of drug administration [Unknown]
  - Condition aggravated [Unknown]
  - Incorrect dose administered [Unknown]
